FAERS Safety Report 19517583 (Version 4)
Quarter: 2021Q3

REPORT INFORMATION
  Report Type: Report from Study
  Country: US (occurrence: US)
  Receive Date: 20210712
  Receipt Date: 20210929
  Transmission Date: 20211014
  Serious: Yes (Other)
  Sender: FDA-Public Use
  Company Number: US-EMD SERONO-9249998

PATIENT
  Age: 73 Year
  Sex: Female

DRUGS (1)
  1. REBIF [Suspect]
     Active Substance: INTERFERON BETA-1A
     Indication: MULTIPLE SCLEROSIS
     Route: 058
     Dates: start: 202102

REACTIONS (19)
  - Myalgia [Unknown]
  - Dyspnoea [Unknown]
  - Muscle spasticity [Unknown]
  - Oesophageal disorder [Unknown]
  - Heart rate decreased [Unknown]
  - Arthritis [Unknown]
  - Muscular weakness [Unknown]
  - Fatigue [Unknown]
  - Multiple sclerosis relapse [Unknown]
  - Haemorrhagic diathesis [Unknown]
  - Injection site discolouration [Unknown]
  - Gastritis [Unknown]
  - Pollakiuria [Unknown]
  - Lack of injection site rotation [Unknown]
  - Depression [Unknown]
  - Gastric disorder [Unknown]
  - Urinary retention [Unknown]
  - Arthropathy [Unknown]
  - Angiopathy [Unknown]

NARRATIVE: CASE EVENT DATE: 2021
